FAERS Safety Report 20034203 (Version 2)
Quarter: 2022Q3

REPORT INFORMATION
  Report Type: Spontaneous
  Country: CA (occurrence: CA)
  Receive Date: 20211104
  Receipt Date: 20220826
  Transmission Date: 20221026
  Serious: Yes (Disabling, Other)
  Sender: FDA-Public Use
  Company Number: None

PATIENT
  Sex: Female
  Weight: 66 kg

DRUGS (8)
  1. CITALOPRAM HYDROBROMIDE [Interacting]
     Active Substance: CITALOPRAM HYDROBROMIDE
     Indication: Product used for unknown indication
     Dosage: 30 MG
     Route: 048
     Dates: start: 201411
  2. BUPROPION HYDROCHLORIDE [Interacting]
     Active Substance: BUPROPION HYDROCHLORIDE
     Indication: Depression
     Dosage: 75 MG, Q WEEK
     Route: 048
  3. BUPROPION HYDROCHLORIDE [Interacting]
     Active Substance: BUPROPION HYDROCHLORIDE
     Dosage: 100 MG, QD
     Route: 048
     Dates: start: 20150410, end: 20210424
  4. VITAMIN D3 [Concomitant]
     Active Substance: CHOLECALCIFEROL
     Indication: Product used for unknown indication
     Dosage: 1 DF, Q WEEK
     Dates: start: 201804
  5. PANTOPRAZOLE [Concomitant]
     Active Substance: PANTOPRAZOLE
     Indication: Product used for unknown indication
     Dosage: 40 MG, QD
     Route: 048
     Dates: start: 201910
  6. ALBUTEROL [Concomitant]
     Active Substance: ALBUTEROL
     Indication: Product used for unknown indication
     Dosage: 4 DF, QD
     Dates: start: 201504
  7. SEREVENT DISKUS [Concomitant]
     Active Substance: SALMETEROL XINAFOATE
     Indication: Product used for unknown indication
     Dosage: 1 DF, QD
     Dates: start: 201903
  8. SPIRIVA [Concomitant]
     Active Substance: TIOTROPIUM BROMIDE MONOHYDRATE
     Indication: Product used for unknown indication
     Dosage: 1 DF, QD
     Dates: start: 201505

REACTIONS (4)
  - Groin pain [Recovered/Resolved]
  - Muscle spasms [Recovered/Resolved]
  - Myoclonic dystonia [Recovered/Resolved]
  - Potentiating drug interaction [Recovered/Resolved]

NARRATIVE: CASE EVENT DATE: 20200201
